FAERS Safety Report 6919561-3 (Version None)
Quarter: 2010Q3

REPORT INFORMATION
  Report Type: 
  Country: None (occurrence: None)
  Receive Date: 20100811
  Receipt Date: 20100730
  Transmission Date: 20110219
  Serious: Yes (Hospitalization)
  Sender: FDA-Public Use
  Company Number: PL-MEDIMMUNE-MEDI-0011349

PATIENT
  Sex: Female
  Weight: 5.2 kg

DRUGS (1)
  1. SYNAGIS [Suspect]
     Indication: BRONCHOPULMONARY DYSPLASIA
     Route: 030
     Dates: start: 20100223, end: 20100406

REACTIONS (3)
  - ANXIETY [None]
  - BODY TEMPERATURE INCREASED [None]
  - BRONCHITIS [None]
